FAERS Safety Report 7097952-0 (Version None)
Quarter: 2010Q4

REPORT INFORMATION
  Report Type: 
  Country: None (occurrence: None)
  Receive Date: 20101112
  Receipt Date: 20101101
  Transmission Date: 20110411
  Serious: Yes (Other)
  Sender: FDA-Public Use
  Company Number: TW-JNJFOC-20101102947

PATIENT
  Sex: Male

DRUGS (3)
  1. DURAGESIC-100 [Suspect]
     Indication: ILL-DEFINED DISORDER
     Dosage: 100UG/HR + 25UG/HR
     Route: 062
  2. DURAGESIC-100 [Suspect]
     Route: 062
  3. DURAGESIC-100 [Suspect]
     Dosage: 50 UG/HR X 2
     Route: 062

REACTIONS (2)
  - DRUG TOXICITY [None]
  - SLOW RESPONSE TO STIMULI [None]
